FAERS Safety Report 7780957-1 (Version None)
Quarter: 2011Q3

REPORT INFORMATION
  Report Type: 
  Country: None (occurrence: None)
  Receive Date: 20110923
  Receipt Date: 20110912
  Transmission Date: 20111222
  Serious: No
  Sender: FDA-Public Use
  Company Number: TCI2011A04386

PATIENT
  Age: 65 Year
  Sex: Male

DRUGS (10)
  1. NEWTOLIDE (HYDROCHLOROTHIAZIDE) [Concomitant]
  2. RASILEZ (ALISKIREN) [Concomitant]
  3. ACTOS [Suspect]
     Indication: DIABETES MELLITUS
     Dosage: 15 MG (15 MG, 1 IN 1 D)
     Route: 048
     Dates: start: 20091116, end: 20100912
  4. LANSOPRAZOLE [Concomitant]
  5. ATELEC (CILNIDIPINE) [Concomitant]
  6. METGLUCO (METFORMIN HYDROCHLORIDE) [Concomitant]
  7. BASEN OD (VOGLIBOSE) [Concomitant]
  8. PLAVIX [Concomitant]
  9. LIPITOR [Concomitant]
  10. MICARDIS [Concomitant]

REACTIONS (2)
  - BLOOD URINE PRESENT [None]
  - URINE CYTOLOGY ABNORMAL [None]
